FAERS Safety Report 12906353 (Version 1)
Quarter: 2016Q4

REPORT INFORMATION
  Report Type: Spontaneous
  Country: US (occurrence: US)
  Receive Date: 20161103
  Receipt Date: 20161103
  Transmission Date: 20170207
  Serious: No
  Sender: FDA-Public Use
  Company Number: US-PFIZER INC-2016509822

PATIENT
  Age: 54 Year
  Sex: Male

DRUGS (2)
  1. LYRICA [Suspect]
     Active Substance: PREGABALIN
     Indication: PAIN
     Dosage: 75 MG, 2X/DAY, FOR 90 DAYS
     Dates: start: 20161024
  2. LYRICA [Suspect]
     Active Substance: PREGABALIN
     Indication: HEADACHE

REACTIONS (3)
  - Arthropod bite [Not Recovered/Not Resolved]
  - Blister [Recovering/Resolving]
  - Drug ineffective [Not Recovered/Not Resolved]

NARRATIVE: CASE EVENT DATE: 201610
